FAERS Safety Report 25175326 (Version 1)
Quarter: 2025Q2

REPORT INFORMATION
  Report Type: Spontaneous
  Country: US (occurrence: US)
  Receive Date: 20250408
  Receipt Date: 20250408
  Transmission Date: 20250717
  Serious: Yes (Death, Other)
  Sender: PURDUE
  Company Number: US-PURDUE-USA-2025-0316647

PATIENT
  Age: 50 Year
  Sex: Male

DRUGS (2)
  1. DEXTROAMPHETAMINE SACCHARATE, AMPHETAMINE ASPARTATE, DEXTROAMPHETAMINE [Suspect]
     Active Substance: AMPHETAMINE ASPARTATE\AMPHETAMINE SULFATE\DEXTROAMPHETAMINE SACCHARATE\DEXTROAMPHETAMINE SULFATE
     Indication: Product used for unknown indication
     Route: 048
  2. METHAMPHETAMINE [Suspect]
     Active Substance: METHAMPHETAMINE
     Indication: Product used for unknown indication
     Route: 065

REACTIONS (7)
  - Road traffic accident [Fatal]
  - Injury [Fatal]
  - Rib fracture [Fatal]
  - Femur fracture [Fatal]
  - Ankle fracture [Fatal]
  - Haemorrhage intracranial [Fatal]
  - Drug screen positive [Unknown]
